FAERS Safety Report 6796231-6 (Version None)
Quarter: 2010Q2

REPORT INFORMATION
  Report Type: 
  Country: None (occurrence: None)
  Receive Date: 20100624
  Receipt Date: 20100624
  Transmission Date: 20101027
  Serious: Yes (Disabling)
  Sender: FDA-Public Use
  Company Number: None

PATIENT
  Age: 55 Year
  Sex: Female
  Weight: 55.7924 kg

DRUGS (1)
  1. ALENDRONATE SODIUM [Suspect]
     Indication: OSTEOPENIA
     Dosage: ONCE WEEKLY
     Dates: start: 20070201, end: 20100615

REACTIONS (6)
  - DUODENAL ULCER [None]
  - DYSPEPSIA [None]
  - EMOTIONAL DISTRESS [None]
  - GASTRITIS ATROPHIC [None]
  - GASTROINTESTINAL DISORDER [None]
  - WEIGHT DECREASED [None]
